FAERS Safety Report 10038621 (Version 1)
Quarter: 2014Q1

REPORT INFORMATION
  Report Type: Spontaneous
  Country: US (occurrence: None)
  Receive Date: 20140306
  Receipt Date: 20140306
  Transmission Date: 20141002
  Serious: Yes (Hospitalization)
  Sender: FDA-Public Use
  Company Number: 163-21880-12060360

PATIENT
  Age: 75 Year
  Sex: Male

DRUGS (8)
  1. REVLIMID [Suspect]
     Indication: PLASMA CELL MYELOMA
     Dosage: 25 MG, 21 IN 28D, PO
     Route: 048
     Dates: start: 20120515
  2. DECADRON (DEXAMETHASONE) [Concomitant]
  3. COUMADIN (WARFARIN SODIUM) [Concomitant]
  4. ASA (ACETYLSALICYLIC ACID) [Concomitant]
  5. ZOCOR (SIMVASTATIN) [Concomitant]
  6. PLAVIX (CLOPIDOGREL SULFATE) [Concomitant]
  7. VELCADE (BORTEZOMIB) [Concomitant]
  8. TOPROL XL (METOPROLOL SUCCINATE) [Concomitant]

REACTIONS (4)
  - Deep vein thrombosis [None]
  - Vision blurred [None]
  - Dysgeusia [None]
  - Fatigue [None]
